FAERS Safety Report 6820725-8 (Version None)
Quarter: 2010Q3

REPORT INFORMATION
  Report Type: 
  Country: None (occurrence: None)
  Receive Date: 20100707
  Receipt Date: 20070515
  Transmission Date: 20110219
  Serious: No
  Sender: FDA-Public Use
  Company Number: US-PFIZER INC-2007041872

PATIENT

DRUGS (2)
  1. SERTRALINE [Suspect]
  2. ZOLOFT [Concomitant]

REACTIONS (4)
  - DIZZINESS [None]
  - NERVOUSNESS [None]
  - PANIC ATTACK [None]
  - TINNITUS [None]
